FAERS Safety Report 12662319 (Version 1)
Quarter: 2016Q3

REPORT INFORMATION
  Report Type: Report from Study
  Country: US (occurrence: US)
  Receive Date: 20160817
  Receipt Date: 20160817
  Transmission Date: 20161109
  Serious: Yes (Other)
  Sender: FDA-Public Use
  Company Number: US-ABBVIE-16K-163-1681950-00

PATIENT
  Age: 61 Year
  Sex: Male
  Weight: 134.84 kg

DRUGS (2)
  1. HUMIRA [Suspect]
     Active Substance: ADALIMUMAB
     Indication: CROHN^S DISEASE
     Route: 058
     Dates: start: 20140714, end: 20160620
  2. HUMIRA [Suspect]
     Active Substance: ADALIMUMAB
     Route: 058
     Dates: start: 20160801

REACTIONS (2)
  - Knee arthroplasty [Recovering/Resolving]
  - Weight abnormal [Unknown]

NARRATIVE: CASE EVENT DATE: 20160711
